FAERS Safety Report 25054341 (Version 2)
Quarter: 2025Q2

REPORT INFORMATION
  Report Type: Spontaneous
  Country: US (occurrence: US)
  Receive Date: 20250307
  Receipt Date: 20250401
  Transmission Date: 20250716
  Serious: No
  Sender: SANOFI AVENTIS
  Company Number: US-SA-2025SA066579

PATIENT
  Age: 33 Year
  Sex: Female

DRUGS (3)
  1. DUPIXENT [Suspect]
     Active Substance: DUPILUMAB
     Indication: Dermatitis atopic
     Route: 058
     Dates: start: 202412, end: 202412
  2. DUPIXENT [Suspect]
     Active Substance: DUPILUMAB
     Dosage: 300MG, QOW
     Route: 058
     Dates: start: 20250227, end: 2025
  3. DUPIXENT [Suspect]
     Active Substance: DUPILUMAB
     Route: 058
     Dates: start: 2025, end: 2025

REACTIONS (6)
  - Discomfort [Unknown]
  - Skin burning sensation [Unknown]
  - Erythema [Unknown]
  - Body temperature abnormal [Unknown]
  - Dermatitis atopic [Recovering/Resolving]
  - Intentional product misuse [Unknown]

NARRATIVE: CASE EVENT DATE: 20250227
